FAERS Safety Report 7206146-7 (Version None)
Quarter: 2010Q4

REPORT INFORMATION
  Report Type: 
  Country: None (occurrence: None)
  Receive Date: 20101229
  Receipt Date: 20101229
  Transmission Date: 20110411
  Serious: Yes (Hospitalization)
  Sender: FDA-Public Use
  Company Number: None

PATIENT
  Age: 77 Year
  Sex: Female
  Weight: 48.4 kg

DRUGS (8)
  1. DECITABINE 0.2MG/KG SUB-Q [Suspect]
     Indication: MYELODYSPLASTIC SYNDROME
  2. VIT D3 [Concomitant]
  3. FOLIC ACID [Concomitant]
  4. DOCUSATE SODIUM [Concomitant]
  5. VIT B6 [Concomitant]
  6. XALATAN [Concomitant]
  7. OXACARBAZEPINE [Concomitant]
  8. NASONEX [Concomitant]

REACTIONS (8)
  - ASTHENIA [None]
  - DECREASED APPETITE [None]
  - DIZZINESS [None]
  - FATIGUE [None]
  - NEUTROPENIA [None]
  - ORTHOSTATIC HYPOTENSION [None]
  - SEPSIS [None]
  - VISION BLURRED [None]
